FAERS Safety Report 23677833 (Version 2)
Quarter: 2024Q2

REPORT INFORMATION
  Report Type: Spontaneous
  Country: CA (occurrence: CA)
  Receive Date: 20240327
  Receipt Date: 20240405
  Transmission Date: 20240716
  Serious: Yes (Other)
  Sender: FDA-Public Use
  Company Number: CA-PFIZER INC-202300232969

PATIENT
  Age: 68 Year
  Sex: Male
  Weight: 82 kg

DRUGS (2)
  1. RUXIENCE [Suspect]
     Active Substance: RITUXIMAB-PVVR
     Indication: Glomerulonephritis membranous
     Dosage: 1000 MG, WEEK 1 + 3 WITH REPEATS EVERY 6 MONTHS (DAY 1)
     Route: 042
     Dates: start: 20230926
  2. RUXIENCE [Suspect]
     Active Substance: RITUXIMAB-PVVR
     Dosage: 1000 MG, WEEK 1 AND WEEK 3, EVERY 6 MONTHS
     Route: 042
     Dates: start: 20231013

REACTIONS (4)
  - Lower respiratory tract infection [Recovering/Resolving]
  - Respiratory tract congestion [Recovering/Resolving]
  - Sinusitis [Recovering/Resolving]
  - Off label use [Unknown]

NARRATIVE: CASE EVENT DATE: 20230926
